FAERS Safety Report 21967178 (Version 1)
Quarter: 2023Q1

REPORT INFORMATION
  Report Type: Spontaneous
  Country: US (occurrence: US)
  Receive Date: 20230208
  Receipt Date: 20230208
  Transmission Date: 20230418
  Serious: No
  Sender: FDA-Public Use
  Company Number: US-SANOFI-01480939

PATIENT
  Age: 68 Year
  Sex: Male

DRUGS (1)
  1. LANTUS SOLOSTAR [Suspect]
     Active Substance: INSULIN GLARGINE
     Indication: Diabetes mellitus
     Dosage: 14 UNITS TWICE DAILY IF HE HAS EATEN SOMETHING, OR 7 UNITS TWICE A DAY IF HE HAS NOT EATEN, BID

REACTIONS (1)
  - Inappropriate schedule of product administration [Unknown]
